FAERS Safety Report 9443414 (Version 1)
Quarter: 2013Q3

REPORT INFORMATION
  Report Type: Spontaneous
  Country: FR (occurrence: FR)
  Receive Date: 20130806
  Receipt Date: 20130806
  Transmission Date: 20140515
  Serious: Yes (Hospitalization)
  Sender: FDA-Public Use
  Company Number: FR-GLAXOSMITHKLINE-B0912150A

PATIENT
  Age: 87 Year
  Sex: Female

DRUGS (6)
  1. LAMICTAL [Suspect]
     Indication: EPILEPSY
     Dosage: 25MG PER DAY
     Route: 065
     Dates: start: 20121220, end: 20130115
  2. PAROXETINE [Concomitant]
     Indication: PRODUCT USED FOR UNKNOWN INDICATION
     Dosage: 20MG PER DAY
     Route: 065
     Dates: end: 20130116
  3. PERINDOPRIL [Concomitant]
     Indication: PRODUCT USED FOR UNKNOWN INDICATION
     Dosage: 4MG PER DAY
     Route: 065
     Dates: end: 20130116
  4. KARDEGIC [Concomitant]
     Indication: PRODUCT USED FOR UNKNOWN INDICATION
     Dosage: 75MG PER DAY
     Route: 065
  5. ESOMEPRAZOLE [Concomitant]
     Indication: PRODUCT USED FOR UNKNOWN INDICATION
     Dosage: 40MG PER DAY
     Route: 065
     Dates: end: 20130115
  6. DOMPERIDONE [Concomitant]
     Dosage: 10MG UNKNOWN
     Route: 065
     Dates: start: 20130104, end: 20130114

REACTIONS (3)
  - Neutropenia [Recovered/Resolved]
  - Inflammation [Unknown]
  - Agranulocytosis [Recovered/Resolved]
